FAERS Safety Report 9062008 (Version 2)
Quarter: 2013Q1

REPORT INFORMATION
  Report Type: Spontaneous
  Country: DE (occurrence: DE)
  Receive Date: 20130128
  Receipt Date: 20130221
  Transmission Date: 20140127
  Serious: Yes (Hospitalization)
  Sender: FDA-Public Use
  Company Number: DE-AMGEN-DEUSP2013004929

PATIENT
  Age: 51 Year
  Sex: Female
  Weight: 68.4 kg

DRUGS (4)
  1. NEULASTA [Suspect]
     Indication: PRODUCT USED FOR UNKNOWN INDICATION
     Dosage: UNK, 1X
  2. EPIRUBICIN [Concomitant]
     Indication: BREAST CANCER
     Dosage: 150 MG/M2, UNK
     Route: 042
     Dates: start: 20130115
  3. GRANISETRON [Concomitant]
     Indication: CHEMOTHERAPY
     Dosage: 1 MG, UNK
     Route: 042
     Dates: start: 20130115
  4. DEXAMETHASON                       /00016001/ [Concomitant]
     Indication: CHEMOTHERAPY
     Dosage: 8 MG, UNK
     Route: 042
     Dates: start: 20130115

REACTIONS (1)
  - Anaphylactic shock [Recovered/Resolved]
